FAERS Safety Report 22024408 (Version 2)
Quarter: 2023Q1

REPORT INFORMATION
  Report Type: Spontaneous
  Country: CN (occurrence: CN)
  Receive Date: 20230223
  Receipt Date: 20230305
  Transmission Date: 20230418
  Serious: Yes (Hospitalization, Other)
  Sender: FDA-Public Use
  Company Number: CN-ALKEM LABORATORIES LIMITED-CN-ALKEM-2023-01767

PATIENT
  Age: 61 Year
  Sex: Male

DRUGS (1)
  1. DABIGATRAN ETEXILATE MESYLATE [Suspect]
     Active Substance: DABIGATRAN ETEXILATE MESYLATE
     Indication: Atrial fibrillation
     Dosage: 110 MILLIGRAM, BID FOR 1 YEAR
     Route: 065

REACTIONS (3)
  - Acute kidney injury [Recovering/Resolving]
  - IgA nephropathy [Recovering/Resolving]
  - Coagulopathy [Recovering/Resolving]
